FAERS Safety Report 10917901 (Version 1)
Quarter: 2015Q1

REPORT INFORMATION
  Report Type: Spontaneous
  Country: CN (occurrence: CN)
  Receive Date: 20150316
  Receipt Date: 20150316
  Transmission Date: 20150721
  Serious: Yes (Hospitalization)
  Sender: FDA-Public Use
  Company Number: CN-ASTRAZENECA-2015SE23686

PATIENT
  Age: 684 Month
  Sex: Female

DRUGS (6)
  1. QUETIAPINE FUMARATE. [Suspect]
     Active Substance: QUETIAPINE FUMARATE
     Indication: DEPRESSION
     Route: 048
     Dates: start: 20090701, end: 20140708
  2. PAROXETINE HYDROCHLORIDE. [Suspect]
     Active Substance: PAROXETINE HYDROCHLORIDE
     Indication: DEPRESSION
     Route: 048
     Dates: start: 20140701, end: 20140708
  3. QUETIAPINE FUMARATE. [Suspect]
     Active Substance: QUETIAPINE FUMARATE
     Indication: DEPRESSION
     Route: 048
     Dates: start: 20140709, end: 20140716
  4. ESTAZOLAM. [Suspect]
     Active Substance: ESTAZOLAM
     Indication: DEPRESSION
     Route: 048
     Dates: start: 20090701, end: 20140708
  5. ESTAZOLAM. [Suspect]
     Active Substance: ESTAZOLAM
     Indication: DEPRESSION
     Route: 048
     Dates: start: 20140709, end: 20140716
  6. PAROXETINE HYDROCHLORIDE. [Suspect]
     Active Substance: PAROXETINE HYDROCHLORIDE
     Indication: DEPRESSION
     Route: 048
     Dates: start: 20140709, end: 20140716

REACTIONS (4)
  - Hepatic function abnormal [Recovering/Resolving]
  - Asthenia [Unknown]
  - Dizziness [Unknown]
  - Pyrexia [Unknown]

NARRATIVE: CASE EVENT DATE: 201407
